FAERS Safety Report 7753986-1 (Version None)
Quarter: 2011Q3

REPORT INFORMATION
  Report Type: 
  Country: None (occurrence: None)
  Receive Date: 20110915
  Receipt Date: 20110907
  Transmission Date: 20111222
  Serious: Yes (Other)
  Sender: FDA-Public Use
  Company Number: US-ACTELION-A-US2011-52826

PATIENT

DRUGS (12)
  1. OXYGEN [Concomitant]
  2. COMBIVENT [Concomitant]
  3. ASPIRIN [Concomitant]
  4. GLIPIZIDE [Concomitant]
  5. METFORMIN HYDROCHLORIDE [Concomitant]
  6. LASIX [Concomitant]
  7. TRACLEER [Suspect]
     Indication: PULMONARY ARTERIAL HYPERTENSION
     Dosage: 125 MG, BID
     Route: 048
     Dates: start: 20090421
  8. REVATIO [Suspect]
  9. ALLOPURINOL [Concomitant]
  10. DILTIAZEM [Concomitant]
  11. LOVASTATIN [Concomitant]
  12. LISINOPRIL [Concomitant]

REACTIONS (2)
  - VISUAL IMPAIRMENT [None]
  - GOUT [None]
